FAERS Safety Report 8270500 (Version 22)
Quarter: 2013Q3

REPORT INFORMATION
  Report Type: Report from Study
  Country: DE (occurrence: DE)
  Receive Date: 20111201
  Receipt Date: 20130719
  Transmission Date: 20140515
  Serious: Yes (Death, Hospitalization)
  Sender: FDA-Public Use
  Company Number: DE-ROCHE-1009730

PATIENT
  Age: 54 Year
  Sex: Male
  Weight: 88 kg

DRUGS (9)
  1. VEMURAFENIB [Suspect]
     Indication: MALIGNANT MELANOMA
     Dosage: LAST DOSE PRIOR TO SAE 20 NOV 2011
     Route: 048
     Dates: start: 20111101, end: 20111127
  2. METAMIZOL [Concomitant]
     Route: 065
     Dates: start: 20111017
  3. FENTANYL [Concomitant]
     Dosage: 12 UG/H/L/L
     Route: 065
     Dates: start: 20111017, end: 20111121
  4. FENTANYL [Concomitant]
     Dosage: 25 UG/H/L/L
     Route: 065
     Dates: start: 20121121
  5. DEXAMETHASON [Concomitant]
     Route: 065
     Dates: start: 20111026, end: 20111121
  6. ZOPICLONE [Concomitant]
     Route: 065
     Dates: start: 20111025
  7. IBUPROFEN [Concomitant]
     Route: 065
     Dates: start: 20111027, end: 20111122
  8. PANTOPRAZOL [Concomitant]
     Route: 065
     Dates: start: 20111027
  9. RESTEX [Concomitant]
     Dosage: 100/25 MG
     Route: 065
     Dates: start: 20111025

REACTIONS (1)
  - Hydrocephalus [Fatal]
